FAERS Safety Report 10064136 (Version 2)
Quarter: 2014Q2

REPORT INFORMATION
  Report Type: Spontaneous
  Country: US (occurrence: None)
  Receive Date: 20140404
  Receipt Date: 20140418
  Transmission Date: 20141212
  Serious: Yes (Death)
  Sender: FDA-Public Use
  Company Number: UTC-046536

PATIENT
  Age: 91 Year
  Sex: Female
  Weight: 43 kg

DRUGS (2)
  1. TYVASO [Suspect]
     Indication: COR PULMONALE CHRONIC
     Dosage: 18-54 MICROGRAMS (4 IN 1 INHALATION)
     Route: 055
     Dates: start: 20110609
  2. ADCIRCA (TADALAFIL) [Concomitant]

REACTIONS (1)
  - Death [None]
